FAERS Safety Report 7942708-7 (Version None)
Quarter: 2011Q4

REPORT INFORMATION
  Report Type: 
  Country: None (occurrence: None)
  Receive Date: 20111114
  Receipt Date: 20110210
  Transmission Date: 20120403
  Serious: Yes (Other)
  Sender: FDA-Public Use
  Company Number: 2011S1000076

PATIENT
  Age: 63 Year
  Sex: Male

DRUGS (1)
  1. CUBICIN [Suspect]
     Indication: STAPHYLOCOCCAL SEPSIS
     Dosage: IV
     Route: 042
     Dates: start: 20110207

REACTIONS (2)
  - CONVULSION [None]
  - BRAIN ABSCESS [None]
